FAERS Safety Report 19867007 (Version 1)
Quarter: 2021Q3

REPORT INFORMATION
  Report Type: Spontaneous
  Country: US (occurrence: US)
  Receive Date: 20210922
  Receipt Date: 20210922
  Transmission Date: 20211014
  Serious: Yes (Other)
  Sender: FDA-Public Use
  Company Number: None

PATIENT
  Age: 16 Year
  Sex: Male
  Weight: 74.7 kg

DRUGS (4)
  1. DULOXETINE. [Suspect]
     Active Substance: DULOXETINE
     Indication: MAJOR DEPRESSION
     Route: 048
     Dates: start: 20150102, end: 20150203
  2. DEXMETHYLPHENIDATE  XR [Concomitant]
     Active Substance: DEXMETHYLPHENIDATE HYDROCHLORIDE
     Dates: start: 20140902, end: 20151005
  3. DEXMETHYLPHENIDATE [Concomitant]
     Active Substance: DEXMETHYLPHENIDATE HYDROCHLORIDE
     Dates: start: 20140902, end: 20151005
  4. DULOXETINE. [Suspect]
     Active Substance: DULOXETINE
     Indication: GENERALISED ANXIETY DISORDER
     Route: 048
     Dates: start: 20150102, end: 20150203

REACTIONS (7)
  - Depression [None]
  - Irritability [None]
  - Pyrexia [None]
  - Asthenia [None]
  - Product substitution issue [None]
  - Influenza like illness [None]
  - Sleep deficit [None]

NARRATIVE: CASE EVENT DATE: 20150102
